FAERS Safety Report 8564787-9 (Version None)
Quarter: 2012Q3

REPORT INFORMATION
  Report Type: 
  Country: None (occurrence: None)
  Receive Date: 20120803
  Receipt Date: 20120725
  Transmission Date: 20120928
  Serious: Yes (Other)
  Sender: FDA-Public Use
  Company Number: US-US-EMD SERONO, INC.-7150294

PATIENT
  Sex: Male

DRUGS (3)
  1. UNSPECIFIED ANTIDEPRESSANT [Concomitant]
     Indication: PRODUCT USED FOR UNKNOWN INDICATION
  2. REBIF [Suspect]
     Indication: PRODUCT USED FOR UNKNOWN INDICATION
     Route: 058
     Dates: start: 20070403
  3. MIDOL [Concomitant]
     Indication: PREMEDICATION

REACTIONS (4)
  - SUICIDAL BEHAVIOUR [None]
  - MYALGIA [None]
  - ANXIETY [None]
  - CHILLS [None]
